FAERS Safety Report 25351026 (Version 1)
Quarter: 2025Q2

REPORT INFORMATION
  Report Type: Spontaneous
  Country: US (occurrence: US)
  Receive Date: 20250523
  Receipt Date: 20250523
  Transmission Date: 20250717
  Serious: No
  Sender: ROCHE
  Company Number: US-ROCHE-10000278193

PATIENT
  Sex: Female

DRUGS (2)
  1. LUCENTIS [Suspect]
     Active Substance: RANIBIZUMAB
     Indication: Retinal neovascularisation
     Dosage: IN LEFT EYE
     Route: 050
     Dates: start: 20181112
  2. LUCENTIS [Suspect]
     Active Substance: RANIBIZUMAB
     Dosage: ONCE EVERY 4 TO 5 WEEKS IN RIGHT EYE
     Route: 050
     Dates: start: 20250505

REACTIONS (2)
  - Off label use [Unknown]
  - No adverse event [Unknown]
